FAERS Safety Report 5257738-6 (Version None)
Quarter: 2007Q1

REPORT INFORMATION
  Report Type: 
  Country: None (occurrence: None)
  Receive Date: 20070307
  Receipt Date: 20070223
  Transmission Date: 20070707
  Serious: Yes (Other)
  Sender: FDA-Public Use
  Company Number: BR-JNJFOC-20070204064

PATIENT
  Age: 20 Year
  Sex: Male
  Weight: 55 kg

DRUGS (3)
  1. ACETAMINOPHEN W/ CODEINE [Suspect]
     Indication: CHEST PAIN
     Route: 048
  2. ACETAMINOPHEN W/ CODEINE [Suspect]
     Indication: BACK PAIN
     Route: 048
  3. NIMESULIDE [Concomitant]
     Indication: INFECTION

REACTIONS (1)
  - PARALYSIS [None]
